FAERS Safety Report 20704714 (Version 3)
Quarter: 2022Q2

REPORT INFORMATION
  Report Type: Report from Study
  Country: TH (occurrence: TH)
  Receive Date: 20220413
  Receipt Date: 20220603
  Transmission Date: 20220721
  Serious: Yes (Other)
  Sender: FDA-Public Use
  Company Number: TH-NOVARTISPH-NVSC2020TH086506

PATIENT
  Sex: Female

DRUGS (18)
  1. ENTRESTO [Suspect]
     Active Substance: SACUBITRIL\VALSARTAN
     Indication: Cardiac failure
     Dosage: 0.5 DOSAGE FORM (100 MG) (PC MORNING AND EVENING)
     Route: 048
     Dates: start: 20200318
  2. ENTRESTO [Suspect]
     Active Substance: SACUBITRIL\VALSARTAN
     Indication: Cardiac failure congestive
     Dosage: 0.5 DOSAGE FORM, BID (100 MG) (AFTER BREAKFAST AND DINNER)
     Route: 048
  3. ASPIRIN [Concomitant]
     Active Substance: ASPIRIN
     Indication: Antiplatelet therapy
     Dosage: 1 DOSAGE FORM, QD (PC MORNING) (AFTER BREAKFAST)
     Route: 048
  4. MIRACID [Concomitant]
     Indication: Gastric ulcer
     Dosage: 1 DOSAGE FORM, QD (AC MORNING) (DO NOT CRUSH) (BEFORE BREAKFAST)
     Route: 048
  5. MIRACID [Concomitant]
     Indication: Dyspepsia
  6. IVABRADINE HYDROCHLORIDE [Concomitant]
     Active Substance: IVABRADINE HYDROCHLORIDE
     Indication: Chest pain
     Dosage: 0.5 DOSAGE FORM, BID (PC MORNING AND EVENING)
     Route: 048
  7. XARATOR [Concomitant]
     Indication: Hyperlipidaemia
     Dosage: 1 DOSAGE FORM, QD (PC EVENING) (AFTER DINNER)
     Route: 048
  8. APOLETS [Concomitant]
     Indication: Anticoagulant therapy
     Dosage: 1 DOSAGE FORM, QD (PC MORNING)
     Route: 048
  9. SENOKOT [Concomitant]
     Active Substance: SENNOSIDES
     Indication: Laxative supportive care
     Dosage: 1 DOSAGE FORM, QD
     Route: 048
  10. NEOPECT [Concomitant]
     Indication: Sedation
     Dosage: 1 DOSAGE FORM, 8QD
     Route: 048
  11. BISOPROLOL FUMARATE [Concomitant]
     Active Substance: BISOPROLOL FUMARATE
     Indication: Hypertension
     Dosage: 1 DOSAGE FORM, QD (PC MORNING)
     Route: 048
  12. BERAMOL [Concomitant]
     Indication: Pyrexia
     Dosage: 1 DOSAGE FORM, Q6H
     Route: 048
  13. BERAMOL [Concomitant]
     Indication: Pain
  14. MYDOCALM [Concomitant]
     Indication: Muscle relaxant therapy
     Dosage: 1 DOSAGE FORM, TID (PC MORNING, AFTERNOON, EVENING)
     Route: 048
  15. MYFENAX [Concomitant]
     Active Substance: MYCOPHENOLATE MOFETIL
     Indication: Pain
     Dosage: UNK UNK, BID (APPLY IN MORNING AND EVENING)
     Route: 065
  16. MYFENAX [Concomitant]
     Active Substance: MYCOPHENOLATE MOFETIL
     Indication: Antiinflammatory therapy
  17. CARVEDILOL [Concomitant]
     Active Substance: CARVEDILOL
     Indication: Cardiovascular disorder
     Dosage: 1 DOSAGE FORM, BID (AFTER BREAKFAST AND DINNER)
     Route: 048
  18. POVIDONE-IODINE [Concomitant]
     Active Substance: POVIDONE-IODINE
     Indication: Product used for unknown indication
     Dosage: UNK, TID (AT MORNING, NOON AND EVENING) (1-2 CC MIXED WITH WATER TO COMPLETE 30 CC) (BETADINE)
     Route: 065

REACTIONS (2)
  - Coronary artery disease [Unknown]
  - Wrong technique in product usage process [Unknown]
